FAERS Safety Report 24149846 (Version 2)
Quarter: 2024Q3

REPORT INFORMATION
  Report Type: Spontaneous
  Country: DE (occurrence: DE)
  Receive Date: 20240730
  Receipt Date: 20240802
  Transmission Date: 20241016
  Serious: No
  Sender: BIOGEN
  Company Number: DE-GERMAN-LIT/DEU/24/0010203

PATIENT
  Age: 47 Year
  Sex: Female

DRUGS (1)
  1. DALFAMPRIDINE [Suspect]
     Active Substance: DALFAMPRIDINE
     Indication: Walking disability
     Route: 050

REACTIONS (1)
  - Disease progression [Unknown]
